FAERS Safety Report 5828790-1 (Version None)
Quarter: 2008Q3

REPORT INFORMATION
  Report Type: 
  Country: None (occurrence: None)
  Receive Date: 20080729
  Receipt Date: 20080729
  Transmission Date: 20090109
  Serious: No
  Sender: FDA-Public Use
  Company Number: None

PATIENT
  Age: 66 Year
  Sex: Male

DRUGS (2)
  1. OXYCODONE HCL [Suspect]
     Indication: PAIN
     Dates: start: 20080725, end: 20080725
  2. VARENICLINE [Suspect]

REACTIONS (2)
  - AGGRESSION [None]
  - AGITATION [None]
